FAERS Safety Report 10247166 (Version 2)
Quarter: 2014Q2

REPORT INFORMATION
  Report Type: Spontaneous
  Country: US (occurrence: US)
  Receive Date: 20140619
  Receipt Date: 20140619
  Transmission Date: 20141212
  Serious: Yes (Hospitalization, Other)
  Sender: FDA-Public Use
  Company Number: US-009507513-2012SP006353

PATIENT
  Sex: Female
  Weight: 61.69 kg

DRUGS (1)
  1. NUVARING [Suspect]
     Indication: CONTRACEPTION
     Dates: start: 20100113, end: 20100216

REACTIONS (13)
  - Tricuspid valve incompetence [Unknown]
  - Pulmonary embolism [Unknown]
  - Pulmonary infarction [Unknown]
  - Acute respiratory failure [Unknown]
  - Iron deficiency anaemia [Unknown]
  - Emotional disorder [Unknown]
  - Mental disorder [Unknown]
  - Microcytic anaemia [Not Recovered/Not Resolved]
  - Rhinitis [Unknown]
  - Muscle spasms [Recovered/Resolved]
  - Loss of consciousness [Unknown]
  - Dysfunctional uterine bleeding [Unknown]
  - Dizziness [Unknown]
